FAERS Safety Report 6444474-3 (Version None)
Quarter: 2009Q4

REPORT INFORMATION
  Report Type: 
  Country: None (occurrence: None)
  Receive Date: 20091118
  Receipt Date: 20091029
  Transmission Date: 20100525
  Serious: Yes (Hospitalization)
  Sender: FDA-Public Use
  Company Number: DE-AMGEN-US374760

PATIENT
  Age: 71 Year
  Sex: Female

DRUGS (6)
  1. ENBREL [Suspect]
     Indication: RHEUMATOID ARTHRITIS
     Route: 058
     Dates: start: 20070101
  2. LANTAREL [Suspect]
     Indication: RHEUMATOID ARTHRITIS
     Route: 058
  3. TRAMADOL [Concomitant]
  4. TILIDINE [Concomitant]
  5. MORPHINE [Concomitant]
  6. FOLIC ACID [Concomitant]

REACTIONS (2)
  - CONDITION AGGRAVATED [None]
  - RHEUMATOID ARTHRITIS [None]
